FAERS Safety Report 11651714 (Version 1)
Quarter: 2015Q4

REPORT INFORMATION
  Report Type: Spontaneous
  Country: US (occurrence: None)
  Receive Date: 20151021
  Receipt Date: 20151021
  Transmission Date: 20160304
  Serious: Yes (Hospitalization)
  Sender: FDA-Public Use
  Company Number: None

PATIENT
  Age: 64 Year
  Sex: Male
  Weight: 78 kg

DRUGS (2)
  1. VALPROIC ACID. [Suspect]
     Active Substance: VALPROIC ACID
     Indication: PAIN
     Route: 048
     Dates: start: 20140701, end: 20150818
  2. VALPROIC ACID. [Suspect]
     Active Substance: VALPROIC ACID
     Indication: DEPRESSION
     Route: 048
     Dates: start: 20140701, end: 20150818

REACTIONS (10)
  - Fall [None]
  - Alanine aminotransferase increased [None]
  - Asterixis [None]
  - Liver injury [None]
  - Ammonia increased [None]
  - Cerebrovascular accident [None]
  - Seizure [None]
  - Syncope [None]
  - Tremor [None]
  - Anaemia macrocytic [None]

NARRATIVE: CASE EVENT DATE: 20150818
